FAERS Safety Report 6466212-0 (Version None)
Quarter: 2009Q4

REPORT INFORMATION
  Report Type: 
  Country: None (occurrence: None)
  Receive Date: 20091202
  Receipt Date: 20091123
  Transmission Date: 20100525
  Serious: Yes (Other)
  Sender: FDA-Public Use
  Company Number: US-ROCHE-670575

PATIENT
  Sex: Male

DRUGS (2)
  1. PEGASYS [Suspect]
     Indication: HEPATITIS C
     Route: 065
     Dates: start: 20010615
  2. PEG-INTRON [Suspect]
     Indication: HEPATITIS C
     Route: 065

REACTIONS (3)
  - LABORATORY TEST ABNORMAL [None]
  - LIVER TRANSPLANT [None]
  - TREATMENT FAILURE [None]
